FAERS Safety Report 9973858 (Version 3)
Quarter: 2015Q1

REPORT INFORMATION
  Report Type: Spontaneous
  Country: JP (occurrence: JP)
  Receive Date: 20140306
  Receipt Date: 20150316
  Transmission Date: 20150721
  Serious: Yes (Death)
  Sender: FDA-Public Use
  Company Number: JP-PFIZER INC-2014063013

PATIENT
  Age: 82 Year
  Sex: Male

DRUGS (4)
  1. CELECOX [Suspect]
     Active Substance: CELECOXIB
     Indication: SPONDYLOLISTHESIS
     Dosage: 200 MG, DAILY
     Route: 048
  2. MYONAL [Concomitant]
     Active Substance: EPERISONE HYDROCHLORIDE
     Route: 048
  3. HARNAL [Suspect]
     Active Substance: TAMSULOSIN HYDROCHLORIDE
     Indication: BENIGN PROSTATIC HYPERPLASIA
     Dosage: 0.1 MG, 1X/DAY
     Route: 048
  4. MOHRUS L [Concomitant]
     Active Substance: KETOPROFEN

REACTIONS (1)
  - Acute myocardial infarction [Fatal]
